FAERS Safety Report 7732479-1 (Version None)
Quarter: 2011Q3

REPORT INFORMATION
  Report Type: 
  Country: None (occurrence: None)
  Receive Date: 20110906
  Receipt Date: 20110901
  Transmission Date: 20111222
  Serious: Yes (Death)
  Sender: FDA-Public Use
  Company Number: US-ASTRAZENECA-2011SE52818

PATIENT

DRUGS (2)
  1. TOPROL-XL [Suspect]
     Route: 048
  2. CRESTOR [Suspect]
     Route: 048

REACTIONS (1)
  - DEATH [None]
